FAERS Safety Report 6883536-3 (Version None)
Quarter: 2010Q3

REPORT INFORMATION
  Report Type: 
  Country: None (occurrence: None)
  Receive Date: 20100729
  Receipt Date: 20100714
  Transmission Date: 20110219
  Serious: Yes (Other)
  Sender: FDA-Public Use
  Company Number: PHHY2010DE46732

PATIENT
  Sex: Female
  Weight: 59 kg

DRUGS (2)
  1. EXJADE [Suspect]
     Indication: TRANSFUSION
     Dosage: 1000 MG
     Route: 048
     Dates: start: 20080109, end: 20090903
  2. REVLIMID [Concomitant]
     Indication: CYTOGENETIC ABNORMALITY

REACTIONS (8)
  - BIOPSY [None]
  - BLOOD ALKALINE PHOSPHATASE INCREASED [None]
  - BLOOD PHOSPHORUS DECREASED [None]
  - BONE DENSITY DECREASED [None]
  - BONE MARROW DISORDER [None]
  - LOWER LIMB FRACTURE [None]
  - OSTEOPOROSIS [None]
  - RENAL TUBULAR DISORDER [None]
